FAERS Safety Report 18763258 (Version 1)
Quarter: 2021Q1

REPORT INFORMATION
  Report Type: Spontaneous
  Country: US (occurrence: US)
  Receive Date: 20210120
  Receipt Date: 20210120
  Transmission Date: 20210419
  Serious: Yes (Other)
  Sender: FDA-Public Use
  Company Number: None

PATIENT
  Age: 71 Year
  Sex: Male
  Weight: 114 kg

DRUGS (4)
  1. OMEPRAZOLE 20MG [Concomitant]
     Active Substance: OMEPRAZOLE
     Dates: start: 20170421
  2. HUMIRA 40 MG SC [Concomitant]
     Dates: start: 20170510
  3. OTEZLA [Suspect]
     Active Substance: APREMILAST
     Indication: PSORIATIC ARTHROPATHY
     Route: 048
     Dates: start: 20210115, end: 20210119
  4. AMLODIPINE 10MG TABLET [Concomitant]
     Dates: start: 20170421

REACTIONS (4)
  - Nausea [None]
  - Economic problem [None]
  - Therapy interrupted [None]
  - Headache [None]

NARRATIVE: CASE EVENT DATE: 20210118
